FAERS Safety Report 15897598 (Version 1)
Quarter: 2019Q1

REPORT INFORMATION
  Report Type: Spontaneous
  Country: US (occurrence: US)
  Receive Date: 20190131
  Receipt Date: 20190131
  Transmission Date: 20190417
  Serious: No
  Sender: FDA-Public Use
  Company Number: US-GLENMARK PHARMACEUTICALS-2018GMK038474

PATIENT

DRUGS (3)
  1. ACYCLOVIR OINTMENT USP [Suspect]
     Active Substance: ACYCLOVIR
     Indication: HERPES ZOSTER
     Dosage: UNK, BID
     Route: 061
     Dates: start: 20181122, end: 20181127
  2. ELIQUIS [Concomitant]
     Active Substance: APIXABAN
     Indication: PRODUCT USED FOR UNKNOWN INDICATION
     Dosage: UNK
     Route: 065
  3. FLUCONID [Concomitant]
     Indication: PRODUCT USED FOR UNKNOWN INDICATION
     Dosage: UNK
     Route: 065

REACTIONS (6)
  - Insurance issue [Unknown]
  - Pruritus [Recovering/Resolving]
  - Drug ineffective for unapproved indication [Unknown]
  - Product physical consistency issue [Unknown]
  - Intentional product misuse [Unknown]
  - Product leakage [Unknown]

NARRATIVE: CASE EVENT DATE: 201811
